FAERS Safety Report 14236745 (Version 10)
Quarter: 2018Q2

REPORT INFORMATION
  Report Type: Report from Study
  Country: CO (occurrence: CO)
  Receive Date: 20171129
  Receipt Date: 20180531
  Transmission Date: 20180711
  Serious: Yes (Hospitalization, Other)
  Sender: FDA-Public Use
  Company Number: CO-ASTELLAS-2017US048143

PATIENT
  Age: 70 Year
  Sex: Male
  Weight: 48 kg

DRUGS (1)
  1. ENZALUTAMIDE [Suspect]
     Active Substance: ENZALUTAMIDE
     Indication: HORMONE-DEPENDENT PROSTATE CANCER
     Route: 048
     Dates: start: 20171116

REACTIONS (20)
  - Decubitus ulcer [Recovering/Resolving]
  - Urine abnormality [Not Recovered/Not Resolved]
  - Drug ineffective [Not Recovered/Not Resolved]
  - Haemoglobin decreased [Recovering/Resolving]
  - Calculus urinary [Not Recovered/Not Resolved]
  - Dysphagia [Unknown]
  - Cough [Not Recovered/Not Resolved]
  - Blood urine [Not Recovered/Not Resolved]
  - Eschar [Not Recovered/Not Resolved]
  - Pallor [Not Recovered/Not Resolved]
  - Abdominal discomfort [Not Recovered/Not Resolved]
  - Urinary tract infection [Unknown]
  - Decreased appetite [Recovering/Resolving]
  - Pneumonia [Recovered/Resolved]
  - Throat irritation [Not Recovered/Not Resolved]
  - Muscle atrophy [Unknown]
  - Back pain [Not Recovered/Not Resolved]
  - Epistaxis [Not Recovered/Not Resolved]
  - Dizziness [Not Recovered/Not Resolved]
  - Musculoskeletal pain [Not Recovered/Not Resolved]

NARRATIVE: CASE EVENT DATE: 20171116
